FAERS Safety Report 9611178 (Version 1)
Quarter: 2013Q4

REPORT INFORMATION
  Report Type: Spontaneous
  Country: US (occurrence: US)
  Receive Date: 20131009
  Receipt Date: 20131009
  Transmission Date: 20140711
  Serious: Yes (Other)
  Sender: FDA-Public Use
  Company Number: US-TEVA-436760USA

PATIENT
  Sex: Female

DRUGS (2)
  1. COPAXONE [Suspect]
     Indication: MULTIPLE SCLEROSIS
     Dates: start: 20100927
  2. SOLU-MEDROL [Suspect]

REACTIONS (6)
  - Multiple sclerosis relapse [Unknown]
  - Drug hypersensitivity [Unknown]
  - Lymphadenopathy [Unknown]
  - Arthralgia [Unknown]
  - Gait disturbance [Unknown]
  - Sunburn [Unknown]
